FAERS Safety Report 16338940 (Version 2)
Quarter: 2019Q2

REPORT INFORMATION
  Report Type: Spontaneous
  Country: JP (occurrence: JP)
  Receive Date: 20190521
  Receipt Date: 20190521
  Transmission Date: 20190711
  Serious: Yes (Hospitalization, Other)
  Sender: FDA-Public Use
  Company Number: PHHY2019JP110058

PATIENT
  Sex: Male

DRUGS (1)
  1. PREDNISOLONE. [Suspect]
     Active Substance: PREDNISOLONE
     Indication: FOETAL EXPOSURE DURING PREGNANCY
     Dosage: METARNAL DOSE: 0.5 MG/KG, QD
     Route: 064

REACTIONS (6)
  - Tachycardia foetal [Unknown]
  - Foetal heart rate deceleration abnormality [Unknown]
  - Premature baby [Unknown]
  - Foetal exposure during pregnancy [Unknown]
  - Neonatal cardiac failure [Recovered/Resolved]
  - Supraventricular tachycardia [Recovered/Resolved]
